FAERS Safety Report 16775699 (Version 1)
Quarter: 2019Q3

REPORT INFORMATION
  Report Type: Spontaneous
  Country: US (occurrence: US)
  Receive Date: 20190905
  Receipt Date: 20190905
  Transmission Date: 20191005
  Serious: No
  Sender: FDA-Public Use
  Company Number: US-AMGEN-USASP2019136968

PATIENT
  Age: 66 Year
  Sex: Female

DRUGS (1)
  1. PROLIA [Suspect]
     Active Substance: DENOSUMAB
     Indication: OSTEOPOROSIS POSTMENOPAUSAL
     Dosage: 60 MILLIGRAM, Q6MO
     Route: 065
     Dates: start: 2018

REACTIONS (7)
  - Joint swelling [Unknown]
  - Paraesthesia [Unknown]
  - Peripheral swelling [Not Recovered/Not Resolved]
  - Endodontic procedure [Unknown]
  - Burning sensation [Recovered/Resolved]
  - Skin discolouration [Unknown]
  - Erythema [Unknown]

NARRATIVE: CASE EVENT DATE: 20181231
